FAERS Safety Report 9328319 (Version 2)
Quarter: 2013Q3

REPORT INFORMATION
  Report Type: Report from Study
  Country: US (occurrence: US)
  Receive Date: 20130604
  Receipt Date: 20130718
  Transmission Date: 20140515
  Serious: Yes (Hospitalization, Other)
  Sender: FDA-Public Use
  Company Number: US-BRISTOL-MYERS SQUIBB COMPANY-18941054

PATIENT
  Age: 62 Year
  Sex: Male
  Weight: 111.36 kg

DRUGS (14)
  1. IPILIMUMAB [Suspect]
     Indication: MALIGNANT MELANOMA
     Dosage: RECVD ON:14MAY13, MANTNCE THRPY:Q12WKS ON 24,36,48+60WKS.?TOTAL DOSE 1110 MG.
     Route: 042
     Dates: start: 20130425
  2. SOLU-MEDROL [Suspect]
     Route: 042
  3. CEFTRIAXONE SODIUM [Suspect]
     Dosage: 100ML/HR
  4. DEXTROSE 50% [Concomitant]
     Dosage: AT VARIABLE RATE
  5. HEPARIN SODIUM INJ [Concomitant]
     Dosage: 1 DF: 5000 UNITS
  6. IBUPROFEN [Concomitant]
     Route: 048
  7. PROTONIX [Concomitant]
     Route: 048
  8. SODIUM CHLORIDE [Concomitant]
     Dosage: AT VARIABLE RATE IV.
     Route: 042
  9. TORADOL [Concomitant]
     Dosage: INJECTION X 1 DOSE
  10. VANCOMYCIN HCL [Concomitant]
     Dosage: AT 270MLS/HR X 1 DAY, THEN Q12H X 2
     Route: 042
  11. ZOFRAN [Concomitant]
     Indication: NAUSEA
     Dosage: AS NEEDED
     Route: 042
  12. ZOFRAN [Concomitant]
     Indication: VOMITING
     Dosage: AS NEEDED
     Route: 042
  13. ACETAMINOPHEN [Concomitant]
     Dosage: AS NEEDED
     Route: 048
  14. LOSARTAN POTASSIUM [Concomitant]
     Route: 048

REACTIONS (7)
  - Pyrexia [Recovered/Resolved with Sequelae]
  - Chills [Recovered/Resolved with Sequelae]
  - Hyperhidrosis [Recovered/Resolved with Sequelae]
  - Dehydration [Recovered/Resolved with Sequelae]
  - Diarrhoea [Recovered/Resolved with Sequelae]
  - Retinal artery occlusion [Unknown]
  - Blindness [Unknown]
